FAERS Safety Report 6213851-8 (Version None)
Quarter: 2009Q2

REPORT INFORMATION
  Report Type: 
  Country: None (occurrence: None)
  Receive Date: 20090601
  Receipt Date: 20090601
  Transmission Date: 20091009
  Serious: Yes (Other)
  Sender: FDA-Public Use
  Company Number: None

PATIENT
  Age: 45 Year
  Sex: Female
  Weight: 90.7194 kg

DRUGS (5)
  1. METOCLOPRAMIDE [Suspect]
     Indication: GASTROOESOPHAGEAL REFLUX DISEASE
     Dosage: 10 MG 4 TIMES  A DAY PO
     Route: 048
     Dates: start: 19920907, end: 20001016
  2. METOCLOPRAMIDE [Suspect]
     Indication: IMPAIRED GASTRIC EMPTYING
     Dosage: 10 MG 4 TIMES  A DAY PO
     Route: 048
     Dates: start: 19920907, end: 20001016
  3. METOCLOPRAMIDE [Suspect]
     Indication: GASTROOESOPHAGEAL REFLUX DISEASE
     Dosage: 10 MG 4 TIMES  A DAY PO
     Route: 048
     Dates: start: 20081201, end: 20090527
  4. METOCLOPRAMIDE [Suspect]
     Indication: IMPAIRED GASTRIC EMPTYING
     Dosage: 10 MG 4 TIMES  A DAY PO
     Route: 048
     Dates: start: 20081201, end: 20090527
  5. . [Concomitant]

REACTIONS (2)
  - DYSKINESIA [None]
  - TREMOR [None]
